FAERS Safety Report 19613855 (Version 1)
Quarter: 2021Q3

REPORT INFORMATION
  Report Type: Spontaneous
  Country: PT (occurrence: PT)
  Receive Date: 20210727
  Receipt Date: 20210727
  Transmission Date: 20211014
  Serious: Yes (Life-Threatening, Other)
  Sender: FDA-Public Use
  Company Number: PT-AKCEA THERAPEUTICS-2021IS001089

PATIENT
  Age: 49 Year
  Sex: Male
  Weight: 93.23 kg

DRUGS (3)
  1. ISSD (INTEGRATED SYRINGE SAFETY DEVICE) [Suspect]
     Active Substance: DEVICE
  2. VITAMIN A /00056001/ [Concomitant]
     Active Substance: RETINOL
     Route: 065
     Dates: start: 201402
  3. TEGSEDI [Suspect]
     Active Substance: INOTERSEN SODIUM
     Indication: HEREDITARY NEUROPATHIC AMYLOIDOSIS
     Route: 058
     Dates: start: 20151125, end: 20210120

REACTIONS (7)
  - Renal impairment [Unknown]
  - Non-cirrhotic portal hypertension [Unknown]
  - Hepatic amyloidosis [Unknown]
  - Hepatic function abnormal [Unknown]
  - Thrombocytopenia [Unknown]
  - Hepatosplenomegaly [Unknown]
  - Cholestasis [Unknown]

NARRATIVE: CASE EVENT DATE: 2016
